FAERS Safety Report 25962421 (Version 1)
Quarter: 2025Q4

REPORT INFORMATION
  Report Type: Spontaneous
  Country: EU (occurrence: EU)
  Receive Date: 20251027
  Receipt Date: 20251027
  Transmission Date: 20260117
  Serious: Yes (Other)
  Sender: MYLAN
  Company Number: EU-MYLANLABS-2025M1090376

PATIENT
  Age: 58 Year
  Sex: Male
  Weight: 80 kg

DRUGS (4)
  1. SORAFENIB [Suspect]
     Active Substance: SORAFENIB
     Indication: Hepatic cancer metastatic
     Dosage: 400 MILLIGRAM, BID
  2. SORAFENIB [Suspect]
     Active Substance: SORAFENIB
     Indication: Metastasis
     Dosage: 400 MILLIGRAM, BID
     Route: 065
  3. SORAFENIB [Suspect]
     Active Substance: SORAFENIB
     Dosage: 400 MILLIGRAM, BID
     Route: 065
  4. SORAFENIB [Suspect]
     Active Substance: SORAFENIB
     Dosage: 400 MILLIGRAM, BID

REACTIONS (2)
  - Malignant neoplasm progression [Unknown]
  - Adrenal haematoma [Unknown]
